FAERS Safety Report 7932008-3 (Version None)
Quarter: 2011Q4

REPORT INFORMATION
  Report Type: 
  Country: None (occurrence: None)
  Receive Date: 20111121
  Receipt Date: 20111108
  Transmission Date: 20120403
  Serious: Yes (Other)
  Sender: FDA-Public Use
  Company Number: US-ELI_LILLY_AND_COMPANY-US201111004230

PATIENT
  Age: 79 Year
  Sex: Female

DRUGS (7)
  1. LEVOTHYROXINE SODIUM [Concomitant]
  2. CELEBREX [Concomitant]
  3. VITAMINS NOS [Concomitant]
  4. PRAVACHOL [Concomitant]
  5. FORTEO [Suspect]
     Indication: OSTEOPOROSIS
     Dosage: 20 UG, QD
     Route: 065
     Dates: start: 20110301
  6. HYDROCHLOROTHIAZIDE [Concomitant]
  7. TOPROL-XL [Concomitant]

REACTIONS (1)
  - BREAST CANCER [None]
